FAERS Safety Report 4831643-9 (Version None)
Quarter: 2005Q4

REPORT INFORMATION
  Report Type: 
  Country: None (occurrence: None)
  Receive Date: 20051116
  Receipt Date: 20050523
  Transmission Date: 20060501
  Serious: Yes (Hospitalization, Other)
  Sender: FDA-Public Use
  Company Number: 2005BI010247

PATIENT
  Age: 57 Year
  Sex: Male

DRUGS (2)
  1. AVONEX [Suspect]
     Indication: MULTIPLE SCLEROSIS
     Dosage: 30 UG; QW; IM
     Route: 030
     Dates: start: 20010501
  2. AVONEX [Suspect]
     Indication: MULTIPLE SCLEROSIS
     Dosage: 30 UG;QW; IM
     Route: 030
     Dates: end: 20050501

REACTIONS (6)
  - CATHETER RELATED INFECTION [None]
  - DYSPHAGIA [None]
  - FEEDING TUBE COMPLICATION [None]
  - FISTULA [None]
  - THROAT TIGHTNESS [None]
  - VEIN DISORDER [None]
